FAERS Safety Report 19482670 (Version 2)
Quarter: 2021Q3

REPORT INFORMATION
  Report Type: Spontaneous
  Country: US (occurrence: US)
  Receive Date: 20210701
  Receipt Date: 20210913
  Transmission Date: 20211014
  Serious: Yes (Hospitalization, Other)
  Sender: FDA-Public Use
  Company Number: US-NOVOPROD-823221

PATIENT
  Sex: Female
  Weight: 86.9 kg

DRUGS (2)
  1. NOVOLOG [Suspect]
     Active Substance: INSULIN ASPART
     Indication: TYPE 2 DIABETES MELLITUS
     Dosage: 40 IU, TID (AC)
     Route: 058
  2. LEVEMIR [Concomitant]
     Active Substance: INSULIN DETEMIR
     Indication: TYPE 2 DIABETES MELLITUS
     Dosage: 60 BID
     Route: 065

REACTIONS (5)
  - Large intestinal haemorrhage [Unknown]
  - Renal injury [Unknown]
  - Anaphylactic reaction [Unknown]
  - Loss of consciousness [Unknown]
  - Cholecystectomy [Unknown]
